FAERS Safety Report 13937422 (Version 1)
Quarter: 2017Q3

REPORT INFORMATION
  Report Type: Spontaneous
  Country: CN (occurrence: CN)
  Receive Date: 20170905
  Receipt Date: 20170905
  Transmission Date: 20171127
  Serious: Yes (Other)
  Sender: FDA-Public Use
  Company Number: CN-ASTRAZENECA-2017SE90430

PATIENT
  Sex: Male
  Weight: 58 kg

DRUGS (2)
  1. ROSUVASTATIN. [Suspect]
     Active Substance: ROSUVASTATIN
     Indication: LIPIDS INCREASED
     Route: 048
     Dates: start: 20170609, end: 20170611
  2. MOXIFLOXACIN. [Suspect]
     Active Substance: MOXIFLOXACIN
     Indication: INFECTION
     Route: 042
     Dates: start: 20170609, end: 20170611

REACTIONS (1)
  - Hepatocellular injury [Recovering/Resolving]
